FAERS Safety Report 8297781-6 (Version None)
Quarter: 2012Q2

REPORT INFORMATION
  Report Type: 
  Country: None (occurrence: None)
  Receive Date: 20120417
  Receipt Date: 20120403
  Transmission Date: 20120825
  Serious: Yes (Death, Hospitalization)
  Sender: FDA-Public Use
  Company Number: UTC-017301

PATIENT
  Age: 49 Year
  Sex: Female

DRUGS (2)
  1. ADCIRCA [Concomitant]
  2. TYVASO [Suspect]
     Indication: PULMONARY ARTERIAL HYPERTENSION
     Dosage: UP TO 54 MICROGRAMS (4 IN 1 D), INHALATION
     Route: 055
     Dates: start: 20110908

REACTIONS (1)
  - FAILURE TO THRIVE [None]
